FAERS Safety Report 11861393 (Version 1)
Quarter: 2015Q4

REPORT INFORMATION
  Report Type: Spontaneous
  Country: US (occurrence: US)
  Receive Date: 20151222
  Receipt Date: 20151222
  Transmission Date: 20160305
  Serious: No
  Sender: FDA-Public Use
  Company Number: US-AVANIR PHARMACEUTICALS, INC.-2013NUEUSA00266

PATIENT
  Sex: Male

DRUGS (3)
  1. NUEDEXTA [Suspect]
     Active Substance: DEXTROMETHORPHAN HYDROBROMIDE\QUINIDINE SULFATE
     Indication: AFFECT LABILITY
     Dosage: 1 CAP, QD
     Dates: start: 2011, end: 201303
  2. CARBIDOPA W/LEVODOPA [Concomitant]
     Active Substance: CARBIDOPA\LEVODOPA
     Indication: PARKINSON^S DISEASE
     Dosage: UNK
  3. METFORMIN [Concomitant]
     Active Substance: METFORMIN HYDROCHLORIDE
     Indication: PRODUCT USED FOR UNKNOWN INDICATION
     Dosage: UNK

REACTIONS (8)
  - Loss of consciousness [Not Recovered/Not Resolved]
  - Disorientation [Not Recovered/Not Resolved]
  - Affect lability [Recovered/Resolved]
  - Inability to afford medication [None]
  - Muscle spasms [Not Recovered/Not Resolved]
  - Seizure [Recovering/Resolving]
  - Dizziness [Not Recovered/Not Resolved]
  - Therapy cessation [None]

NARRATIVE: CASE EVENT DATE: 2003
